FAERS Safety Report 21007006 (Version 1)
Quarter: 2022Q2

REPORT INFORMATION
  Report Type: Spontaneous
  Country: CA (occurrence: CA)
  Receive Date: 20220625
  Receipt Date: 20220625
  Transmission Date: 20220721
  Serious: Yes (Other)
  Sender: FDA-Public Use
  Company Number: None

PATIENT
  Age: 28 Year
  Sex: Female

DRUGS (10)
  1. HYDROXYCHLOROQUINE [Suspect]
     Active Substance: HYDROXYCHLOROQUINE
     Indication: Product used for unknown indication
  2. METHOTREXATE [Suspect]
     Active Substance: METHOTREXATE
     Indication: Product used for unknown indication
  3. RITUXIMAB [Suspect]
     Active Substance: RITUXIMAB
     Indication: Rheumatoid arthritis
     Dosage: 1 EVERY 2?WEEKS
     Route: 042
  4. ACETAMINOPHEN [Concomitant]
     Active Substance: ACETAMINOPHEN
  5. AZATHIOPRINE [Concomitant]
     Active Substance: AZATHIOPRINE
  6. DIPHENHYDRAMINE [Concomitant]
     Active Substance: DIPHENHYDRAMINE
  7. METHYLPREDNISOLONE [Concomitant]
     Active Substance: METHYLPREDNISOLONE
  8. MYCOPHENOLATE MOFETIL [Concomitant]
     Active Substance: MYCOPHENOLATE MOFETIL
     Route: 048
  9. PREDNISONE [Concomitant]
     Active Substance: PREDNISONE
     Indication: Rheumatoid arthritis
  10. TACROLIMUS [Concomitant]
     Active Substance: TACROLIMUS
     Route: 048

REACTIONS (18)
  - Arthralgia [Recovered/Resolved]
  - Blood pressure fluctuation [Recovered/Resolved]
  - Cytopenia [Recovered/Resolved]
  - Double stranded DNA antibody positive [Recovered/Resolved]
  - Haematuria [Recovered/Resolved]
  - Hypotension [Recovered/Resolved]
  - Joint swelling [Recovered/Resolved]
  - Lupus vulgaris [Recovered/Resolved]
  - Mouth ulceration [Recovered/Resolved]
  - Musculoskeletal stiffness [Recovered/Resolved]
  - Neuropsychiatric lupus [Recovered/Resolved]
  - Pancytopenia [Recovered/Resolved]
  - Proteinuria [Recovered/Resolved]
  - Rash [Recovered/Resolved]
  - Retinal vasculitis [Recovered/Resolved]
  - Rheumatoid arthritis [Recovered/Resolved]
  - Therapeutic response unexpected [Recovered/Resolved]
  - Vasculitic ulcer [Recovered/Resolved]
